FAERS Safety Report 15612357 (Version 1)
Quarter: 2018Q4

REPORT INFORMATION
  Report Type: Spontaneous
  Country: US (occurrence: US)
  Receive Date: 20181107
  Receipt Date: 20181107
  Transmission Date: 20190205
  Serious: No
  Sender: FDA-Public Use
  Company Number: None

PATIENT
  Age: 63 Year
  Sex: Male
  Weight: 102.06 kg

DRUGS (1)
  1. TALTZ [Suspect]
     Active Substance: IXEKIZUMAB
     Indication: PSORIASIS
     Dosage: INJECT 80MG (1 SYRINGE) SUBCUTANEOUSLY EVERY 2 WEEKS  AT WEEKS 4-12 AS DIRECTED
     Route: 058
     Dates: start: 201804

REACTIONS (2)
  - Drug ineffective [None]
  - Palpitations [None]
